FAERS Safety Report 4760321-X (Version None)
Quarter: 2005Q3

REPORT INFORMATION
  Report Type: 
  Country: None (occurrence: None)
  Receive Date: 20050902
  Receipt Date: 20050411
  Transmission Date: 20060218
  Serious: Yes (Other)
  Sender: FDA-Public Use
  Company Number: PHNU2005DE01598

PATIENT
  Age: 45 Year
  Sex: Female
  Weight: 60 kg

DRUGS (5)
  1. ZOMETA [Suspect]
     Indication: OSTEOLYSIS
     Dosage: 4 MG, QMO
     Dates: start: 20020816, end: 20050404
  2. MELPHALAN [Concomitant]
     Route: 065
     Dates: start: 20030501
  3. DEXAMETHASONE [Concomitant]
     Route: 065
     Dates: start: 20020801, end: 20021101
  4. PEGINTRON ^ESSEX PHARMA^ [Concomitant]
     Dosage: 50 UG, QW
     Route: 065
  5. RADIOTHERAPY [Concomitant]
     Indication: OSTEOLYSIS
     Route: 061
     Dates: start: 20020901, end: 20021001

REACTIONS (8)
  - DRY SOCKET [None]
  - IMPAIRED HEALING [None]
  - OSTEITIS [None]
  - PAIN IN JAW [None]
  - SPLINT APPLICATION [None]
  - TEMPOROMANDIBULAR JOINT SYNDROME [None]
  - TOOTH EXTRACTION [None]
  - TOOTHACHE [None]
